FAERS Safety Report 10470331 (Version 4)
Quarter: 2017Q2

REPORT INFORMATION
  Report Type: Report from Study
  Country: US (occurrence: US)
  Receive Date: 20140923
  Receipt Date: 20170511
  Transmission Date: 20170829
  Serious: Yes (Death, Hospitalization, Other)
  Sender: FDA-Public Use
  Company Number: US-ACTELION-A-US2014-105547

PATIENT
  Age: 81 Year
  Sex: Female
  Weight: 81.63 kg

DRUGS (1)
  1. OPSUMIT [Suspect]
     Active Substance: MACITENTAN
     Indication: PULMONARY ARTERIAL HYPERTENSION
     Dosage: 10 MG, QD
     Route: 048
     Dates: start: 20140411

REACTIONS (7)
  - Fluid retention [Unknown]
  - Cardiac pacemaker insertion [Unknown]
  - Cardiac flutter [Unknown]
  - Malaise [Unknown]
  - Death [Fatal]
  - Heart rate irregular [Unknown]
  - Cardiac failure congestive [Unknown]

NARRATIVE: CASE EVENT DATE: 20170318
